FAERS Safety Report 8530507-7 (Version None)
Quarter: 2012Q3

REPORT INFORMATION
  Report Type: 
  Country: None (occurrence: None)
  Receive Date: 20120723
  Receipt Date: 20120713
  Transmission Date: 20120928
  Serious: Yes (Hospitalization, Other)
  Sender: FDA-Public Use
  Company Number: US-ASTRAZENECA-2010SE14367

PATIENT
  Age: 76 Year
  Sex: Female

DRUGS (2)
  1. TOPROL-XL [Suspect]
     Route: 048
  2. CRESTOR [Suspect]
     Route: 048

REACTIONS (8)
  - UPPER LIMB FRACTURE [None]
  - CATARACT [None]
  - NAUSEA [None]
  - CONCUSSION [None]
  - FALL [None]
  - BACK INJURY [None]
  - IMPAIRED DRIVING ABILITY [None]
  - DIZZINESS [None]
